FAERS Safety Report 9201488 (Version 1)
Quarter: 2013Q2

REPORT INFORMATION
  Report Type: Spontaneous
  Country: US (occurrence: US)
  Receive Date: 20130401
  Receipt Date: 20130401
  Transmission Date: 20140414
  Serious: Yes (Hospitalization)
  Sender: FDA-Public Use
  Company Number: US-BAYER-2013-037508

PATIENT
  Age: 13 Year
  Sex: Female
  Weight: 98.41 kg

DRUGS (12)
  1. GIANVI [Suspect]
  2. YAZ [Suspect]
  3. PREVACID [Concomitant]
     Dosage: 30 MG, 1 TAB DAILY
     Route: 048
     Dates: start: 20100222
  4. FOCALIN [Concomitant]
     Dosage: 20 MG, 1 TAB DAILY
     Route: 048
     Dates: start: 20100823
  5. METFORMIN [Concomitant]
     Dosage: 750 MG, 1 TAB WITH DINNER FOR 2 WEEKS, THEN 2 TABS WITH DINNER
     Route: 048
     Dates: start: 20110726
  6. CEFPROZIL [Concomitant]
  7. ZOCOR [Concomitant]
  8. CEFTRIAXONE [Concomitant]
  9. AZITHROMYCIN [Concomitant]
  10. TYLENOL [PARACETAMOL] [Concomitant]
  11. LANSOPRAZOLE [Concomitant]
  12. MORPHINE [Concomitant]

REACTIONS (2)
  - Deep vein thrombosis [None]
  - Thrombophlebitis superficial [None]
